FAERS Safety Report 14668180 (Version 1)
Quarter: 2018Q1

REPORT INFORMATION
  Report Type: Spontaneous
  Country: US (occurrence: US)
  Receive Date: 20180320
  Receipt Date: 20180320
  Transmission Date: 20180509
  Serious: Yes (Hospitalization)
  Sender: FDA-Public Use
  Company Number: None

PATIENT
  Age: 63 Year
  Sex: Female

DRUGS (17)
  1. WELLBUTRIN [Concomitant]
     Active Substance: BUPROPION HYDROCHLORIDE
  2. SPIRONOLACTONE. [Concomitant]
     Active Substance: SPIRONOLACTONE
  3. ABILIFY [Concomitant]
     Active Substance: ARIPIPRAZOLE
  4. PREMARIN [Concomitant]
     Active Substance: ESTROGENS, CONJUGATED
  5. OXYBUTYNIN. [Concomitant]
     Active Substance: OXYBUTYNIN CHLORIDE
  6. SILDENAFIL 20MG TABLETS [Suspect]
     Active Substance: SILDENAFIL
     Indication: PULMONARY ARTERIAL HYPERTENSION
     Route: 048
     Dates: start: 20150228
  7. METHOCARBAMAZIPINE [Concomitant]
  8. NITRO [Concomitant]
     Active Substance: NITROGLYCERIN
  9. TRACLEER [Concomitant]
     Active Substance: BOSENTAN
  10. ADCIRCA [Concomitant]
     Active Substance: TADALAFIL
  11. CYMBALTA [Concomitant]
     Active Substance: DULOXETINE HYDROCHLORIDE
  12. XANAX [Concomitant]
     Active Substance: ALPRAZOLAM
  13. CLOBETASOL [Concomitant]
     Active Substance: CLOBETASOL
  14. WARFARIN [Concomitant]
     Active Substance: WARFARIN
  15. PROTONIX [Concomitant]
     Active Substance: PANTOPRAZOLE SODIUM
  16. ACYCLOVIR. [Concomitant]
     Active Substance: ACYCLOVIR
  17. RANITIDINE. [Concomitant]
     Active Substance: RANITIDINE

REACTIONS (2)
  - Influenza [None]
  - Oxygen saturation decreased [None]

NARRATIVE: CASE EVENT DATE: 201803
